FAERS Safety Report 25113837 (Version 1)
Quarter: 2025Q1

REPORT INFORMATION
  Report Type: Spontaneous
  Country: MA (occurrence: MA)
  Receive Date: 20250324
  Receipt Date: 20250324
  Transmission Date: 20250409
  Serious: Yes (Death, Other)
  Sender: CHEPLAPHARM
  Company Number: MA-CHEPLA-2025003733

PATIENT
  Age: 3 Month
  Sex: Male
  Weight: 3.5 kg

DRUGS (5)
  1. GANCICLOVIR [Suspect]
     Active Substance: GANCICLOVIR
     Indication: Congenital cytomegalovirus infection
     Dosage: DAILY DOSE: 5 MILLIGRAM/KG
  2. ALBUMIN HUMAN [Suspect]
     Active Substance: ALBUMIN HUMAN
     Indication: Congenital cytomegalovirus infection
  3. ENALAPRIL [Suspect]
     Active Substance: ENALAPRIL
     Indication: Congenital cytomegalovirus infection
     Dosage: DAILY DOSE: 0.2 MILLIGRAM/KG
  4. VITAMIN D [Suspect]
     Active Substance: VITAMIN D NOS
     Indication: Congenital cytomegalovirus infection
     Dosage: DAILY DOSE: 600 IU (INTERNATIONAL UNIT)
  5. ASPIRIN [Suspect]
     Active Substance: ASPIRIN
     Indication: Congenital cytomegalovirus infection
     Dosage: LOW DOSE?DAILY DOSE: 3 MILLIGRAM/KG

REACTIONS (20)
  - Sepsis [Fatal]
  - Respiratory distress [Unknown]
  - Intestinal obstruction [Unknown]
  - Ascites [Unknown]
  - Underweight [Unknown]
  - Dehydration [Unknown]
  - Lid sulcus deepened [Unknown]
  - Small fontanelle [Unknown]
  - Dry mouth [Unknown]
  - Pallor [Unknown]
  - Tachycardia [Unknown]
  - Anaemia [Unknown]
  - Hyponatraemia [Unknown]
  - Leukocytosis [Unknown]
  - Thrombocytosis [Unknown]
  - C-reactive protein increased [Unknown]
  - Hypertriglyceridaemia [Unknown]
  - Hypercholesterolaemia [Unknown]
  - Low density lipoprotein increased [Unknown]
  - Off label use [Unknown]
